FAERS Safety Report 25698787 (Version 1)
Quarter: 2025Q3

REPORT INFORMATION
  Report Type: Report from Study
  Country: CA (occurrence: CA)
  Receive Date: 20250819
  Receipt Date: 20250819
  Transmission Date: 20251021
  Serious: Yes (Other)
  Sender: TAKEDA
  Company Number: CA-TAKEDA-2024TUS076880

PATIENT
  Age: 38 Year
  Sex: Female

DRUGS (9)
  1. VEDOLIZUMAB [Suspect]
     Active Substance: VEDOLIZUMAB
     Indication: Colitis ulcerative
  2. VEDOLIZUMAB [Suspect]
     Active Substance: VEDOLIZUMAB
     Dosage: 300 MILLIGRAM, Q4WEEKS
     Dates: start: 20240815
  3. VEDOLIZUMAB [Suspect]
     Active Substance: VEDOLIZUMAB
     Indication: Colitis ulcerative
     Dosage: 108 MILLIGRAM, Q2WEEKS
     Dates: start: 20240425
  4. MESALAMINE [Concomitant]
     Active Substance: MESALAMINE
  5. CITALOPRAM [Concomitant]
     Active Substance: CITALOPRAM
  6. IRON [Concomitant]
     Active Substance: IRON
  7. VITAMIN D NOS [Concomitant]
     Active Substance: CHOLECALCIFEROL\ERGOCALCIFEROL
  8. FOLIC ACID [Concomitant]
     Active Substance: FOLIC ACID
  9. ZOPICLONE [Concomitant]
     Active Substance: ZOPICLONE

REACTIONS (4)
  - Colitis ulcerative [Not Recovered/Not Resolved]
  - Nasopharyngitis [Not Recovered/Not Resolved]
  - Drug effect less than expected [Unknown]
  - Off label use [Unknown]

NARRATIVE: CASE EVENT DATE: 20240815
